FAERS Safety Report 23050700 (Version 8)
Quarter: 2024Q2

REPORT INFORMATION
  Report Type: Report from Study
  Country: US (occurrence: US)
  Receive Date: 20231010
  Receipt Date: 20240610
  Transmission Date: 20240715
  Serious: Yes (Hospitalization, Other)
  Sender: FDA-Public Use
  Company Number: US-002147023-NVSC2022US064553

PATIENT
  Sex: Female
  Weight: 70.385 kg

DRUGS (12)
  1. TREPROSTINIL [Suspect]
     Active Substance: TREPROSTINIL
     Dosage: 108 NG/KG/MIN, CONT
     Route: 058
     Dates: start: 20240415
  2. TREPROSTINIL [Suspect]
     Active Substance: TREPROSTINIL
     Dosage: 102 NG/KG/MIN,CONT, STRENGTH 10MG/ML
     Route: 058
     Dates: start: 20220318
  3. TREPROSTINIL [Suspect]
     Active Substance: TREPROSTINIL
     Dosage: 108 NG/KG/MIN
     Route: 058
  4. TREPROSTINIL [Suspect]
     Active Substance: TREPROSTINIL
     Dosage: 108 NG/KG/MIN, CONT
     Route: 058
     Dates: start: 20220318
  5. TREPROSTINIL [Suspect]
     Active Substance: TREPROSTINIL
     Dosage: UNK UNK, CONT, 10 NG/KG/MIN
     Route: 058
  6. TREPROSTINIL [Suspect]
     Active Substance: TREPROSTINIL
     Indication: Pulmonary arterial hypertension
     Dosage: 105 NG/KG/MIN,CONT
     Route: 058
     Dates: start: 20220318
  7. TREPROSTINIL [Suspect]
     Active Substance: TREPROSTINIL
     Dosage: 108 NG/KG/MIN,CONT
     Route: 058
  8. TREPROSTINIL [Suspect]
     Active Substance: TREPROSTINIL
     Dosage: 108 NG/KG/MIN,CONT
     Route: 058
  9. TREPROSTINIL [Suspect]
     Active Substance: TREPROSTINIL
     Dosage: 102 NG/KG/MIN,CONT, STRENGTH 10MG/ML
     Route: 058
     Dates: start: 20220318
  10. TREPROSTINIL [Suspect]
     Active Substance: TREPROSTINIL
     Indication: Pulmonary arterial hypertension
     Dosage: 95 NG/KG/MIN, CONT
     Route: 058
  11. REMODULIN [Concomitant]
     Active Substance: TREPROSTINIL
     Indication: Product used for unknown indication
     Route: 058
  12. TADALAFIL [Concomitant]
     Active Substance: TADALAFIL
     Indication: Product used for unknown indication
     Dosage: UNK
     Route: 065

REACTIONS (25)
  - Diabetes mellitus [Unknown]
  - Cardiac failure [Unknown]
  - Hypervolaemia [Unknown]
  - Oxygen saturation decreased [Unknown]
  - Back pain [Unknown]
  - Fatigue [Unknown]
  - Syncope [Unknown]
  - Dermatitis contact [Unknown]
  - Pulmonary pain [Unknown]
  - COVID-19 [Unknown]
  - Eye allergy [Unknown]
  - Nervousness [Unknown]
  - Hypersensitivity [Unknown]
  - Skin discolouration [Unknown]
  - Injection site pruritus [Unknown]
  - Injection site discomfort [Unknown]
  - Injection site pain [Unknown]
  - Rash [Unknown]
  - Nasal pruritus [Unknown]
  - Headache [Unknown]
  - Chest pain [Unknown]
  - Dyspnoea [Unknown]
  - Injection site infection [Unknown]
  - Asthenia [Unknown]
  - Implant site erythema [Unknown]
